FAERS Safety Report 7125176-7 (Version None)
Quarter: 2010Q4

REPORT INFORMATION
  Report Type: 
  Country: None (occurrence: None)
  Receive Date: 20101129
  Receipt Date: 20101116
  Transmission Date: 20110411
  Serious: Yes (Other)
  Sender: FDA-Public Use
  Company Number: DE-JNJFOC-20101105808

PATIENT
  Age: 76 Year
  Sex: Male

DRUGS (1)
  1. ITRACOL HEXAL [Suspect]
     Indication: ILL-DEFINED DISORDER
     Route: 048

REACTIONS (2)
  - MYOCLONUS [None]
  - POLYNEUROPATHY [None]
